FAERS Safety Report 12327589 (Version 1)
Quarter: 2016Q2

REPORT INFORMATION
  Report Type: Spontaneous
  Country: US (occurrence: None)
  Receive Date: 20160502
  Receipt Date: 20160502
  Transmission Date: 20160815
  Serious: No
  Sender: FDA-Public Use
  Company Number: None

PATIENT
  Sex: Female

DRUGS (1)
  1. CAPECITABINE 500MG TEVA [Suspect]
     Active Substance: CAPECITABINE
     Indication: RECTAL CANCER
     Dosage: 3000MG BID FOR 14 DAYS, 7 DAYS OFF PO
     Route: 048
     Dates: start: 20160321, end: 20160426

REACTIONS (2)
  - Palmar-plantar erythrodysaesthesia syndrome [None]
  - Pain [None]
